FAERS Safety Report 23968630 (Version 1)
Quarter: 2024Q2

REPORT INFORMATION
  Report Type: Spontaneous
  Country: US (occurrence: None)
  Receive Date: 20240612
  Receipt Date: 20240612
  Transmission Date: 20240715
  Serious: Yes (Other)
  Sender: FDA-Public Use
  Company Number: None

PATIENT
  Age: 30 Year
  Sex: Male

DRUGS (1)
  1. HERBALS\MUSHROOMS UNSPECIFIED [Suspect]
     Active Substance: HERBALS\MUSHROOMS UNSPECIFIED

REACTIONS (1)
  - Vomiting [None]

NARRATIVE: CASE EVENT DATE: 20240608
